FAERS Safety Report 8240151-7 (Version None)
Quarter: 2012Q1

REPORT INFORMATION
  Report Type: 
  Country: None (occurrence: None)
  Receive Date: 20120328
  Receipt Date: 20120323
  Transmission Date: 20120608
  Serious: Yes (Death, Hospitalization)
  Sender: FDA-Public Use
  Company Number: JP-PFIZER INC-2012027042

PATIENT
  Age: 53 Year
  Sex: Male

DRUGS (3)
  1. CYCLOSPORINE [Suspect]
  2. TACROLIMUS [Suspect]
  3. METHYLPREDNISOLONE [Suspect]
     Indication: IMMUNOSUPPRESSANT DRUG THERAPY

REACTIONS (1)
  - POST TRANSPLANT LYMPHOPROLIFERATIVE DISORDER [None]
